FAERS Safety Report 8905352 (Version 7)
Quarter: 2013Q1

REPORT INFORMATION
  Report Type: Spontaneous
  Country: US (occurrence: US)
  Receive Date: 20121109
  Receipt Date: 20130304
  Transmission Date: 20140127
  Serious: No
  Sender: FDA-Public Use
  Company Number: US-009507513-1211USA002182

PATIENT
  Age: 57 None
  Sex: Female
  Weight: 75.28 kg

DRUGS (4)
  1. PEGINTRON [Suspect]
     Indication: HEPATITIS C
     Dosage: 120 MICROGRAM PER 0.5 MILLILITER REDIPEN, QW
     Route: 058
     Dates: start: 20121018
  2. VICTRELIS [Suspect]
     Indication: HEPATITIS C
     Dosage: 800 MG, TID
     Route: 048
     Dates: start: 20121105
  3. RIBASPHERE [Suspect]
     Dosage: 2 CAPSULES EVERY MORNING AND 3 CAPSULES EVERY EVENING
     Route: 048
     Dates: start: 20121018
  4. AMLODIPINE BESYLATE [Concomitant]
     Dosage: 1 DF, QD
     Route: 048

REACTIONS (14)
  - Lethargy [Not Recovered/Not Resolved]
  - Renal function test abnormal [Unknown]
  - Gait disturbance [Not Recovered/Not Resolved]
  - Bronchitis [Unknown]
  - Visual impairment [Unknown]
  - Influenza like illness [Unknown]
  - Fatigue [Not Recovered/Not Resolved]
  - Asthenia [Not Recovered/Not Resolved]
  - Renal disorder [Not Recovered/Not Resolved]
  - Vomiting [Recovered/Resolved]
  - Dysgeusia [Not Recovered/Not Resolved]
  - Nausea [Recovered/Resolved]
  - Dizziness [Recovered/Resolved]
  - Chills [Recovered/Resolved]
